FAERS Safety Report 24326050 (Version 1)
Quarter: 2024Q3

REPORT INFORMATION
  Report Type: Spontaneous
  Country: ES (occurrence: ES)
  Receive Date: 20240917
  Receipt Date: 20240917
  Transmission Date: 20241016
  Serious: Yes (Death, Hospitalization)
  Sender: ACCORD
  Company Number: None

PATIENT
  Age: 86 Year
  Sex: Female

DRUGS (1)
  1. APIXABAN [Suspect]
     Active Substance: APIXABAN
     Indication: Atrial fibrillation
     Dosage: STRENGTH: 2.5 MG, EFG 20 X 1 TABLETS (SINGLE DOSE), EVERY 12H
     Dates: start: 2023

REACTIONS (3)
  - Anaemia [Fatal]
  - Rectal haemorrhage [Fatal]
  - Epistaxis [Fatal]

NARRATIVE: CASE EVENT DATE: 20240820
